FAERS Safety Report 7677707-6 (Version None)
Quarter: 2011Q3

REPORT INFORMATION
  Report Type: 
  Country: None (occurrence: None)
  Receive Date: 20110811
  Receipt Date: 20110807
  Transmission Date: 20111222
  Serious: Yes (Hospitalization)
  Sender: FDA-Public Use
  Company Number: PHHY2011AU71067

PATIENT
  Sex: Male

DRUGS (2)
  1. CLOZAPINE [Suspect]
     Dosage: 650 MG
     Dates: start: 20100616
  2. ACETAMINOPHEN [Suspect]
     Dosage: 50 TABS OF 500MG

REACTIONS (2)
  - SUICIDE ATTEMPT [None]
  - OVERDOSE [None]
